FAERS Safety Report 7260002-7 (Version None)
Quarter: 2011Q1

REPORT INFORMATION
  Report Type: 
  Country: None (occurrence: None)
  Receive Date: 20110130
  Receipt Date: 20101015
  Transmission Date: 20110831
  Serious: No
  Sender: FDA-Public Use
  Company Number: US-ABBOTT-10P-163-0679104-00

PATIENT
  Age: 63 Year
  Sex: Female

DRUGS (5)
  1. PREMARIN [Concomitant]
     Indication: INSOMNIA
     Dosage: 0.625 MG EVERY NIGHT
     Route: 048
  2. METHOTREXATE [Concomitant]
     Indication: RHEUMATOID ARTHRITIS
     Dosage: 2.5 MG 8 TABLETS ONCE A WEEK
     Route: 048
  3. HUMIRA [Suspect]
     Indication: RHEUMATOID ARTHRITIS
     Dates: start: 20100901
  4. VYTORIN [Concomitant]
     Indication: BLOOD CHOLESTEROL ABNORMAL
     Dosage: 10/10 DAILY
     Route: 048
  5. OMEPRAZOLE [Concomitant]
     Indication: DYSPEPSIA
     Route: 048

REACTIONS (3)
  - SINUS CONGESTION [None]
  - NASOPHARYNGITIS [None]
  - EAR PAIN [None]
